FAERS Safety Report 8250185-4 (Version None)
Quarter: 2012Q2

REPORT INFORMATION
  Report Type: 
  Country: None (occurrence: None)
  Receive Date: 20120402
  Receipt Date: 20120322
  Transmission Date: 20120825
  Serious: Yes (Hospitalization)
  Sender: FDA-Public Use
  Company Number: FR-PFIZER INC-2012080509

PATIENT
  Age: 88 Year
  Sex: Male

DRUGS (1)
  1. CORDARONE [Suspect]
     Indication: ATRIAL FIBRILLATION
     Dosage: 200 MG, UNK
     Route: 048
     Dates: start: 20080101, end: 20120102

REACTIONS (4)
  - HYPONATRAEMIA [None]
  - HYPOTHYROIDISM [None]
  - FALL [None]
  - HEAD INJURY [None]
